FAERS Safety Report 14541315 (Version 1)
Quarter: 2018Q1

REPORT INFORMATION
  Report Type: Spontaneous
  Country: FR (occurrence: FR)
  Receive Date: 20180216
  Receipt Date: 20180216
  Transmission Date: 20180509
  Serious: Yes (Hospitalization, Other)
  Sender: FDA-Public Use
  Company Number: FR-OTSUKA-DJ20084185

PATIENT
  Age: 20 Year
  Sex: Male

DRUGS (2)
  1. ABILIFY [Suspect]
     Active Substance: ARIPIPRAZOLE
     Indication: MENTAL DISORDER
     Dosage: 15 MG, UNK
     Route: 048
     Dates: end: 200810
  2. RIVOTRIL [Suspect]
     Active Substance: CLONAZEPAM
     Indication: MENTAL DISORDER
     Dosage: 2 MG, QD (2MG  HALF OF 1 TABLET BID (MORNING AND EVENING))
     Route: 048

REACTIONS (2)
  - Agranulocytosis [Not Recovered/Not Resolved]
  - Scrotal ulcer [Recovering/Resolving]

NARRATIVE: CASE EVENT DATE: 2008
